FAERS Safety Report 5975233-3 (Version None)
Quarter: 2008Q4

REPORT INFORMATION
  Report Type: 
  Country: None (occurrence: None)
  Receive Date: 20081128
  Receipt Date: 20081118
  Transmission Date: 20090506
  Serious: No
  Sender: FDA-Public Use
  Company Number: 08H-087-0315194-00

PATIENT
  Age: 63 Year
  Sex: Female
  Weight: 37 kg

DRUGS (11)
  1. PRECEDEX [Suspect]
     Indication: SEDATION
     Dosage: 0.4MG/KG/HR, CONTINUOUS, INTRAVENOUS
     Route: 042
     Dates: start: 20070903, end: 20070904
  2. PROPOFOL [Concomitant]
  3. VECURONIUM BROMIDE [Concomitant]
  4. EPHEDRINE HYDROCHLORIDE (EPHEDRINE) [Concomitant]
  5. FENTANYL CITRATE [Concomitant]
  6. ROPIVACAINE HYDROCHLORIDE HYDRATE (ROPIVACAINE HYDROCHLORIDE) [Concomitant]
  7. PHENYLEPHRINE HYDROCHLORIDE (PHENYLEPHRINE) [Concomitant]
  8. NAFAMOSTAT MESILATE (NAFAMOSTAT MESILATE) [Concomitant]
  9. SIVLESTAT SODIUM HYDRATE (SIVLESTAT) [Concomitant]
  10. LANSOPRAZOLE [Concomitant]
  11. CEFAZOLIN SODIUM [Concomitant]

REACTIONS (4)
  - BLOOD ALBUMIN DECREASED [None]
  - HYPOTENSION [None]
  - POST PROCEDURAL COMPLICATION [None]
  - PROTHROMBIN TIME PROLONGED [None]
